FAERS Safety Report 8532786 (Version 3)
Quarter: 2012Q4

REPORT INFORMATION
  Report Type: 
  Country: PL (occurrence: PL)
  Receive Date: 20120426
  Receipt Date: 20120920
  Transmission Date: 20130627
  Serious: Yes (Life-Threatening, Hospitalization)
  Sender: FDA-Public Use
  Company Number: PL-ROCHE-1063292

PATIENT
  Age: 55 Year
  Sex: Female
  Weight: 55 kg

DRUGS (5)
  1. MABTHERA [Suspect]
     Indication: RHEUMATOID ARTHRITIS
     Route: 042
     Dates: start: 20120412
  2. METHOTREXATE [Suspect]
     Indication: RHEUMATOID ARTHRITIS
     Route: 048
     Dates: start: 2009
  3. ENCORTON [Suspect]
     Indication: RHEUMATOID ARTHRITIS
     Route: 065
     Dates: start: 2009
  4. OSTEMAX [Concomitant]
     Indication: OSTEOPOROSIS
     Route: 048
     Dates: start: 2010
  5. FOLIC ACID [Concomitant]
     Route: 048
     Dates: start: 2009

REACTIONS (2)
  - Volvulus of small bowel [Recovering/Resolving]
  - Gastrointestinal necrosis [Recovering/Resolving]
